FAERS Safety Report 9540715 (Version 2)
Quarter: 2013Q3

REPORT INFORMATION
  Report Type: Spontaneous
  Country: GB (occurrence: GB)
  Receive Date: 20130920
  Receipt Date: 20130920
  Transmission Date: 20140515
  Serious: Yes (Other)
  Sender: FDA-Public Use
  Company Number: GB-ABBVIE-13P-167-1133360-00

PATIENT
  Sex: Female

DRUGS (3)
  1. KALETRA [Suspect]
     Indication: PROPHYLAXIS AGAINST HIV INFECTION
  2. EMTRICITABINE W/TENOFOVIR [Interacting]
     Indication: BIPOLAR DISORDER
  3. ASPEN TENOFOVIR + EMTRICITABINE [Concomitant]
     Indication: PROPHYLAXIS AGAINST HIV INFECTION

REACTIONS (3)
  - Coma [Unknown]
  - Off label use [Unknown]
  - Drug interaction [Unknown]
